FAERS Safety Report 7408915-7 (Version None)
Quarter: 2011Q2

REPORT INFORMATION
  Report Type: 
  Country: None (occurrence: None)
  Receive Date: 20110412
  Receipt Date: 20110404
  Transmission Date: 20111010
  Serious: Yes (Hospitalization)
  Sender: FDA-Public Use
  Company Number: BR-ASTRAZENECA-2011SE19171

PATIENT
  Age: 58 Year
  Sex: Female
  Weight: 54 kg

DRUGS (5)
  1. ASPIRIN [Concomitant]
     Route: 048
     Dates: start: 20030101
  2. ATACAND HCT [Suspect]
     Indication: HYPERTENSION
     Dosage: 16/12.5 MILLIGRAM OD
     Route: 048
     Dates: start: 20090701
  3. OMEPRAZOLE [Suspect]
     Indication: GASTRITIS PROPHYLAXIS
     Route: 048
     Dates: start: 20090101
  4. UNKNOWN [Concomitant]
     Indication: ARRHYTHMIA
     Route: 048
     Dates: end: 20110301
  5. SUSTRATE [Concomitant]
     Route: 048
     Dates: start: 20030101

REACTIONS (5)
  - HYPOAESTHESIA [None]
  - CHEST PAIN [None]
  - OSTEOARTHRITIS [None]
  - COUGH [None]
  - ARTHRITIS [None]
